FAERS Safety Report 6119216-1 (Version None)
Quarter: 2009Q1

REPORT INFORMATION
  Report Type: 
  Country: None (occurrence: None)
  Receive Date: 20090311
  Receipt Date: 20090303
  Transmission Date: 20090719
  Serious: Yes (Death)
  Sender: FDA-Public Use
  Company Number: IPS_01498_2009

PATIENT
  Sex: Male
  Weight: 74 kg

DRUGS (1)
  1. APO-GO (APO-GO - APOMORPHINE HYDROCHLORIDE) (NOT SPECIFIED) [Suspect]
     Indication: DRUG USE FOR UNKNOWN INDICATION
     Dosage: (7 MG PER HOUR FOR 50 WEEKS 2 DAYS [15 HOURS DAILY] SUBCUTANEOUS)
     Route: 058
     Dates: start: 20080225, end: 20090210

REACTIONS (1)
  - GASTRIC CANCER [None]
